FAERS Safety Report 7702357-2 (Version None)
Quarter: 2011Q3

REPORT INFORMATION
  Report Type: 
  Country: None (occurrence: None)
  Receive Date: 20110822
  Receipt Date: 20110815
  Transmission Date: 20111222
  Serious: Yes (Hospitalization)
  Sender: FDA-Public Use
  Company Number: CA-B.I. PHARMACEUTICALS,INC./RIDGEFIELD-2011-CN-01195CN

PATIENT

DRUGS (1)
  1. PRADAXA [Suspect]
     Dates: start: 20110601

REACTIONS (2)
  - CARDIAC ARREST [None]
  - CHEST PAIN [None]
